FAERS Safety Report 10249435 (Version 1)
Quarter: 2014Q2

REPORT INFORMATION
  Report Type: Report from Study
  Country: JP (occurrence: None)
  Receive Date: 20140618
  Receipt Date: 20140618
  Transmission Date: 20141212
  Serious: Yes (Other)
  Sender: FDA-Public Use
  Company Number: 2009JP001542

PATIENT
  Age: 43 Year
  Sex: Female
  Weight: 43 kg

DRUGS (14)
  1. PROGRAF (TACROLIMUS) CAPSULE [Suspect]
     Indication: LUPUS NEPHRITIS
     Route: 048
     Dates: start: 20070213, end: 20070228
  2. PREDNISOLONE (PREDNISOLONE) PER ORAL NOS [Suspect]
     Indication: LUPUS NEPHRITIS
     Route: 048
     Dates: end: 20070419
  3. ROHYPNOL (FLUNITRAZEPAM) [Concomitant]
  4. FERROMIA (SODIUM FERROUS CITRATE) [Concomitant]
  5. INCREMIN (FERRIC PYROPHOSPHATE,SOLUBLE) [Concomitant]
  6. PREDONINE (PREDNISOLONE SODIUM SUCCINATE) [Concomitant]
  7. PRIMPERAN (METOCLOPRAMIDE) [Concomitant]
  8. BUSOPAN (SCOPOLAMINE BUTYLBROMIDE) [Concomitant]
  9. SOLDEM 3A (MAINTENANCE MEDIUM) [Concomitant]
  10. HALCION (TRIAZOLAM) [Concomitant]
  11. CALFINA (ALFACALCIDOL) [Concomitant]
  12. TAGAMET /00397401/ (CIMETIDINE) [Concomitant]
  13. DEPAS (ETIZOLAM) [Concomitant]
  14. ASPARA-CA (CALCIUM L-ASPARATE) [Concomitant]

REACTIONS (5)
  - Panic disorder [None]
  - Cataract [None]
  - Upper respiratory tract inflammation [None]
  - Gastroenteritis [None]
  - Anaemia [None]
